FAERS Safety Report 4479329-7 (Version None)
Quarter: 2004Q4

REPORT INFORMATION
  Report Type: 
  Country: None (occurrence: None)
  Receive Date: 20041015
  Receipt Date: 20040927
  Transmission Date: 20050328
  Serious: Yes (Death)
  Sender: FDA-Public Use
  Company Number: 2004235654US

PATIENT
  Age: 40 Year

DRUGS (4)
  1. METFORMIN HYDROCHLORIDE [Suspect]
     Dosage: ORAL
     Route: 048
  2. GLYNASE [Suspect]
     Dosage: ORAL
     Route: 048
  3. SERTRALINE HCL [Suspect]
     Dosage: ORAL
     Route: 048
  4. SEQUINAN (RISPERIDONE) SOLUTION [Suspect]
     Dosage: ORAL
     Route: 048

REACTIONS (2)
  - COMPLETED SUICIDE [None]
  - MULTIPLE DRUG OVERDOSE INTENTIONAL [None]
